FAERS Safety Report 12315695 (Version 1)
Quarter: 2016Q2

REPORT INFORMATION
  Report Type: Spontaneous
  Country: US (occurrence: US)
  Receive Date: 20160428
  Receipt Date: 20160428
  Transmission Date: 20160815
  Serious: Yes (Hospitalization, Other)
  Sender: FDA-Public Use
  Company Number: US-TEVA-655628USA

PATIENT
  Age: 86 Year
  Sex: Female
  Weight: 90.8 kg

DRUGS (2)
  1. ASPIRIN. [Concomitant]
     Active Substance: ASPIRIN
  2. PRAVASTATIN [Suspect]
     Active Substance: PRAVASTATIN\PRAVASTATIN SODIUM
     Route: 065

REACTIONS (8)
  - Oedema peripheral [Unknown]
  - Alopecia [Unknown]
  - Myocardial infarction [Unknown]
  - Shoulder operation [Unknown]
  - Abasia [Unknown]
  - Impaired healing [Unknown]
  - Atrial fibrillation [Unknown]
  - Hospitalisation [Recovered/Resolved]

NARRATIVE: CASE EVENT DATE: 20160217
